FAERS Safety Report 21695489 (Version 1)
Quarter: 2022Q4

REPORT INFORMATION
  Report Type: Spontaneous
  Country: US (occurrence: US)
  Receive Date: 20221207
  Receipt Date: 20221207
  Transmission Date: 20230113
  Serious: Yes (Other)
  Sender: FDA-Public Use
  Company Number: US-ABBVIE-4227245

PATIENT
  Sex: Female

DRUGS (1)
  1. HUMIRA [Suspect]
     Active Substance: ADALIMUMAB
     Indication: Product used for unknown indication
     Route: 058

REACTIONS (5)
  - Multiple sclerosis [Unknown]
  - Furuncle [Not Recovered/Not Resolved]
  - Neurological symptom [Unknown]
  - Pain of skin [Not Recovered/Not Resolved]
  - Headache [Unknown]
